FAERS Safety Report 22337907 (Version 1)
Quarter: 2023Q2

REPORT INFORMATION
  Report Type: Spontaneous
  Country: US (occurrence: None)
  Receive Date: 20230518
  Receipt Date: 20230518
  Transmission Date: 20230722
  Serious: No
  Sender: FDA-Public Use
  Company Number: US-ROCHE-3310844

PATIENT
  Age: 83 Year
  Sex: Male
  Weight: 63.56 kg

DRUGS (8)
  1. ACTEMRA [Suspect]
     Active Substance: TOCILIZUMAB
     Indication: Giant cell arteritis
     Route: 058
     Dates: start: 2021
  2. ACTEMRA [Suspect]
     Active Substance: TOCILIZUMAB
  3. ACTEMRA [Suspect]
     Active Substance: TOCILIZUMAB
     Indication: Rheumatoid arthritis
  4. ACTEMRA [Suspect]
     Active Substance: TOCILIZUMAB
  5. ASPIRIN [Concomitant]
     Active Substance: ASPIRIN
  6. ATORVASTATIN [Concomitant]
     Active Substance: ATORVASTATIN
  7. LATANOPROST [Concomitant]
     Active Substance: LATANOPROST
  8. METOPROLOL [Concomitant]
     Active Substance: METOPROLOL

REACTIONS (6)
  - Product complaint [Unknown]
  - Product complaint [Unknown]
  - Drug delivery system malfunction [Unknown]
  - Product temperature excursion issue [Unknown]
  - Haemorrhage [Recovered/Resolved]
  - Pain [Recovered/Resolved]

NARRATIVE: CASE EVENT DATE: 20230310
